FAERS Safety Report 10578463 (Version 1)
Quarter: 2014Q4

REPORT INFORMATION
  Report Type: Spontaneous
  Country: US (occurrence: None)
  Receive Date: 20141111
  Receipt Date: 20141111
  Transmission Date: 20150529
  Serious: No
  Sender: FDA-Public Use
  Company Number: None

PATIENT
  Age: 44 Year
  Sex: Female

DRUGS (1)
  1. HUMIRA [Suspect]
     Active Substance: ADALIMUMAB
     Dosage: 40MG QOW SQ
     Dates: start: 20140212

REACTIONS (2)
  - Systemic lupus erythematosus [None]
  - Condition aggravated [None]

NARRATIVE: CASE EVENT DATE: 20141107
